FAERS Safety Report 11395033 (Version 1)
Quarter: 2015Q3

REPORT INFORMATION
  Report Type: Spontaneous
  Country: US (occurrence: US)
  Receive Date: 20150819
  Receipt Date: 20150819
  Transmission Date: 20151125
  Serious: Yes (Other)
  Sender: FDA-Public Use
  Company Number: US-HOSPIRA-1949125

PATIENT
  Age: 71 Year
  Sex: Female
  Weight: 66.36 kg

DRUGS (2)
  1. SODIUM CHLORIDE. [Suspect]
     Active Substance: SODIUM CHLORIDE
     Indication: WOUND TREATMENT
     Dosage: UNKNOWN, UNKNOWN
     Route: 065
  2. STERILE WATER [Suspect]
     Active Substance: WATER
     Indication: WOUND TREATMENT
     Dosage: UNKNOWN, UNKNOWN
     Route: 065

REACTIONS (4)
  - Haematoma [Recovering/Resolving]
  - Product contamination [Recovering/Resolving]
  - Postoperative wound infection [Recovering/Resolving]
  - Fall [Recovering/Resolving]

NARRATIVE: CASE EVENT DATE: 20130912
